FAERS Safety Report 10467696 (Version 1)
Quarter: 2014Q3

REPORT INFORMATION
  Report Type: Spontaneous
  Country: NL (occurrence: NL)
  Receive Date: 20140922
  Receipt Date: 20140922
  Transmission Date: 20150326
  Serious: Yes (Hospitalization)
  Sender: FDA-Public Use
  Company Number: NL-GLAXOSMITHKLINE-B1035526A

PATIENT
  Age: 52 Year
  Sex: Male

DRUGS (10)
  1. LOSEC [Concomitant]
     Active Substance: OMEPRAZOLE
  2. SIMVASTATIN. [Concomitant]
     Active Substance: SIMVASTATIN
  3. NEORAL [Concomitant]
     Active Substance: CYCLOSPORINE
  4. ENALAPRIL [Concomitant]
     Active Substance: ENALAPRIL
  5. SELOKEEN [Concomitant]
     Active Substance: METOPROLOL
  6. PREDNISOLON [Concomitant]
     Active Substance: PREDNISOLONE
  7. ACITRETIN [Suspect]
     Active Substance: ACITRETIN
     Indication: PROPHYLAXIS
     Route: 048
     Dates: start: 201402
  8. NORVASC [Concomitant]
     Active Substance: AMLODIPINE BESYLATE
  9. CLOPIDOGREL [Concomitant]
     Active Substance: CLOPIDOGREL BISULFATE
  10. AZATHIOPRINE. [Concomitant]
     Active Substance: AZATHIOPRINE

REACTIONS (1)
  - Cerebrovascular accident [Recovering/Resolving]

NARRATIVE: CASE EVENT DATE: 201403
